FAERS Safety Report 17578143 (Version 2)
Quarter: 2020Q2

REPORT INFORMATION
  Report Type: Spontaneous
  Country: US (occurrence: US)
  Receive Date: 20200324
  Receipt Date: 20200529
  Transmission Date: 20200713
  Serious: Yes (Death, Other)
  Sender: FDA-Public Use
  Company Number: US-ASTRAZENECA-2020SE40905

PATIENT
  Age: 19613 Day
  Sex: Male

DRUGS (21)
  1. VENLAFAXINE [Concomitant]
     Active Substance: VENLAFAXINE HYDROCHLORIDE
  2. SULINDAC. [Concomitant]
     Active Substance: SULINDAC
  3. BYETTA [Suspect]
     Active Substance: EXENATIDE
     Route: 065
     Dates: start: 20140521, end: 20160224
  4. VICTOZA [Suspect]
     Active Substance: LIRAGLUTIDE
     Indication: DIABETES MELLITUS
     Dosage: 1.8-DAILY
     Route: 065
     Dates: start: 20130123, end: 20140521
  5. ENOXAPARIN [Concomitant]
     Active Substance: ENOXAPARIN
  6. LANTUS [Concomitant]
     Active Substance: INSULIN GLARGINE
     Indication: DIABETES MELLITUS
  7. ASPIRIN. [Concomitant]
     Active Substance: ASPIRIN
     Indication: CARDIAC DISORDER
     Dates: start: 2017
  8. VITAMIN D3 [Concomitant]
     Active Substance: CHOLECALCIFEROL
  9. FENOFIBRATE. [Concomitant]
     Active Substance: FENOFIBRATE
  10. NEXIUM [Concomitant]
     Active Substance: ESOMEPRAZOLE MAGNESIUM
  11. VICTOZA [Suspect]
     Active Substance: LIRAGLUTIDE
     Indication: DIABETES MELLITUS
     Dosage: 1.8-DAILY
     Route: 065
     Dates: start: 20160224, end: 20180627
  12. ROSUVASTATIN. [Concomitant]
     Active Substance: ROSUVASTATIN
  13. LORAZEPAM. [Concomitant]
     Active Substance: LORAZEPAM
  14. VICTOZA [Suspect]
     Active Substance: LIRAGLUTIDE
     Indication: DIABETES MELLITUS
     Dosage: 1.8-DAILY
     Route: 065
     Dates: start: 20110727
  15. NOVOLOG [Concomitant]
     Active Substance: INSULIN ASPART
     Indication: DIABETES MELLITUS
  16. METFORMIN [Concomitant]
     Active Substance: METFORMIN HYDROCHLORIDE
     Indication: DIABETES MELLITUS
  17. KOMBIGLYZE XR [Concomitant]
     Active Substance: METFORMIN HYDROCHLORIDE\SAXAGLIPTIN HYDROCHLORIDE
     Indication: DIABETES MELLITUS
  18. HUMALOG [Concomitant]
     Active Substance: INSULIN LISPRO
     Indication: DIABETES MELLITUS
  19. GABAPENTIN. [Concomitant]
     Active Substance: GABAPENTIN
  20. BYDUREON [Suspect]
     Active Substance: EXENATIDE
     Indication: DIABETES MELLITUS
     Dosage: 1.5 MG SQ INCREASING TO 2 MG SQ-WEEKLY
     Route: 065
     Dates: start: 20140521, end: 20160224
  21. SYMBICORT [Concomitant]
     Active Substance: BUDESONIDE\FORMOTEROL FUMARATE DIHYDRATE

REACTIONS (10)
  - Pancreatic carcinoma metastatic [Unknown]
  - Cardiac arrest [Fatal]
  - Pulmonary embolism [Fatal]
  - Metastases to bone [Unknown]
  - Pancreatic carcinoma metastatic [Unknown]
  - Malignant lymphoid neoplasm [Unknown]
  - Metastases to central nervous system [Unknown]
  - Haemorrhagic stroke [Fatal]
  - Pancreatic carcinoma [Unknown]
  - Metastases to liver [Unknown]

NARRATIVE: CASE EVENT DATE: 20180329
